FAERS Safety Report 5150800-8 (Version None)
Quarter: 2006Q4

REPORT INFORMATION
  Report Type: 
  Country: None (occurrence: None)
  Receive Date: 20061108
  Receipt Date: 20061025
  Transmission Date: 20070319
  Serious: Yes (Hospitalization)
  Sender: FDA-Public Use
  Company Number: 231750

PATIENT
  Age: 55 Year
  Sex: Male
  Weight: 18 kg

DRUGS (4)
  1. MABTHERA (RITUXIMAB) CONC FOR SOLUTION FOR INFUSION [Suspect]
     Indication: B-CELL LYMPHOMA
     Dosage: INTRAVENOUS
     Route: 042
     Dates: start: 20060818, end: 20060818
  2. ETOPOSIDE [Suspect]
     Indication: B-CELL LYMPHOMA
     Dosage: INTRAVENOUS
     Route: 042
     Dates: start: 20060818, end: 20060820
  3. CARBOPLATIN [Suspect]
     Indication: B-CELL LYMPHOMA
     Dosage: 680 MG, QD, INTRAVENOUS
     Route: 042
     Dates: start: 20060819, end: 20060819
  4. MESNA [Suspect]
     Indication: B-CELL LYMPHOMA
     Dosage: INTRAVENOUS
     Route: 042
     Dates: start: 20060819, end: 20060819

REACTIONS (3)
  - CONFUSIONAL STATE [None]
  - DISORIENTATION [None]
  - PARANOIA [None]
